FAERS Safety Report 13391058 (Version 1)
Quarter: 2017Q1

REPORT INFORMATION
  Report Type: Spontaneous
  Country: JP (occurrence: JP)
  Receive Date: 20170331
  Receipt Date: 20170331
  Transmission Date: 20170429
  Serious: Yes (Hospitalization, Other)
  Sender: FDA-Public Use
  Company Number: JP-GLAXOSMITHKLINE-JP2017JPN043445

PATIENT
  Age: 63 Year
  Sex: Female

DRUGS (2)
  1. HEPSERA [Suspect]
     Active Substance: ADEFOVIR DIPIVOXIL
     Indication: HEPATIC CIRRHOSIS
     Dosage: UNK
     Route: 048
  2. ZEFIX [Suspect]
     Active Substance: LAMIVUDINE
     Indication: CHRONIC HEPATITIS B
     Dosage: UNK
     Route: 048

REACTIONS (11)
  - Fanconi syndrome acquired [Unknown]
  - Renal tubular disorder [Unknown]
  - Chest pain [Unknown]
  - Multiple fractures [Unknown]
  - Diabetes mellitus inadequate control [Unknown]
  - Psoriatic arthropathy [Unknown]
  - Pollakiuria [Unknown]
  - Osteoporosis [Unknown]
  - Hypophosphataemia [Unknown]
  - Pain in extremity [Unknown]
  - Arthralgia [Recovering/Resolving]
